FAERS Safety Report 15215529 (Version 2)
Quarter: 2018Q3

REPORT INFORMATION
  Report Type: Spontaneous
  Country: US (occurrence: US)
  Receive Date: 20180730
  Receipt Date: 20180730
  Transmission Date: 20181010
  Serious: Yes (Hospitalization, Other)
  Sender: FDA-Public Use
  Company Number: US-CELGENEUS-USA-20180708131

PATIENT
  Sex: Female

DRUGS (1)
  1. OTEZLA [Suspect]
     Active Substance: APREMILAST
     Indication: PSORIASIS
     Dosage: 60 MILLIGRAM
     Route: 048
     Dates: start: 20180307, end: 201804

REACTIONS (4)
  - Atrial fibrillation [Not Recovered/Not Resolved]
  - Renal disorder [Not Recovered/Not Resolved]
  - Drug ineffective [Not Recovered/Not Resolved]
  - Adverse drug reaction [Not Recovered/Not Resolved]

NARRATIVE: CASE EVENT DATE: 2018
